FAERS Safety Report 26090529 (Version 1)
Quarter: 2025Q4

REPORT INFORMATION
  Report Type: Spontaneous
  Country: US (occurrence: US)
  Receive Date: 20251126
  Receipt Date: 20251126
  Transmission Date: 20260119
  Serious: No
  Sender: SYNDAX
  Company Number: US-SYNDAX PHARMACEUTICALS, INC.-2025US000910

PATIENT

DRUGS (1)
  1. REVUFORJ [Suspect]
     Active Substance: REVUMENIB CITRATE
     Indication: Product used for unknown indication
     Dosage: UNK
     Route: 065

REACTIONS (6)
  - Platelet count decreased [Recovering/Resolving]
  - Parosmia [Recovering/Resolving]
  - Abdominal discomfort [Recovering/Resolving]
  - Burning sensation [Recovering/Resolving]
  - Taste disorder [Recovering/Resolving]
  - Paraesthesia [Recovering/Resolving]
